FAERS Safety Report 9106950 (Version 1)
Quarter: 2013Q1

REPORT INFORMATION
  Report Type: Spontaneous
  Country: FR (occurrence: FR)
  Receive Date: 20130221
  Receipt Date: 20130221
  Transmission Date: 20140127
  Serious: Yes (Hospitalization, Other)
  Sender: FDA-Public Use
  Company Number: FR-BRISTOL-MYERS SQUIBB COMPANY-17379264

PATIENT
  Age: 47 Year
  Sex: Male

DRUGS (2)
  1. REYATAZ CAPS [Suspect]
     Indication: HIV INFECTION
  2. TRUVADA [Suspect]
     Indication: HIV INFECTION
     Dates: end: 20121113

REACTIONS (2)
  - Haemolytic anaemia [Unknown]
  - Cholelithiasis [Unknown]
